FAERS Safety Report 4683061-4 (Version None)
Quarter: 2005Q2

REPORT INFORMATION
  Report Type: 
  Country: None (occurrence: None)
  Receive Date: 20050606
  Receipt Date: 20050527
  Transmission Date: 20051028
  Serious: Yes (Disabling, Other)
  Sender: FDA-Public Use
  Company Number: AU-MERCK-0506AUS00009

PATIENT
  Age: 51 Year
  Sex: Male

DRUGS (5)
  1. VIOXX [Suspect]
     Route: 048
     Dates: start: 20020201, end: 20041001
  2. VIOXX [Suspect]
     Route: 048
     Dates: start: 20010101
  3. RANITIDINE HYDROCHLORIDE [Concomitant]
     Route: 065
  4. ALLOPURINOL [Concomitant]
     Route: 065
  5. OXAZEPAM [Concomitant]
     Route: 065

REACTIONS (2)
  - CEREBROVASCULAR ACCIDENT [None]
  - MYOCARDIAL INFARCTION [None]
